FAERS Safety Report 16890916 (Version 3)
Quarter: 2019Q4

REPORT INFORMATION
  Report Type: Spontaneous
  Country: US (occurrence: US)
  Receive Date: 20191007
  Receipt Date: 20191031
  Transmission Date: 20200122
  Serious: No
  Sender: FDA-Public Use
  Company Number: US-PFIZER INC-2019429807

PATIENT
  Age: 58 Year
  Sex: Female
  Weight: 105.2 kg

DRUGS (2)
  1. AZITHROMYCIN ANHYDROUS. [Suspect]
     Active Substance: AZITHROMYCIN ANHYDROUS
     Dosage: 250 MG, 1X/DAY (1 FOR 5 DAYS)
     Dates: start: 1999, end: 2019
  2. AZITHROMYCIN ANHYDROUS. [Suspect]
     Active Substance: AZITHROMYCIN ANHYDROUS
     Indication: BRONCHITIS CHRONIC
     Dosage: 250 MG, 2X/DAY (2 THE FIRST DAY)
     Dates: start: 1999, end: 2019

REACTIONS (1)
  - Gastrointestinal disorder [Unknown]
